FAERS Safety Report 11156349 (Version 1)
Quarter: 2015Q2

REPORT INFORMATION
  Report Type: Spontaneous
  Country: US (occurrence: None)
  Receive Date: 20150601
  Receipt Date: 20150601
  Transmission Date: 20150821
  Serious: Yes (Life-Threatening)
  Sender: FDA-Public Use
  Company Number: None

PATIENT
  Age: 53 Year
  Sex: Female
  Weight: 70.31 kg

DRUGS (12)
  1. SUPERIOR SOURCE B12 [Concomitant]
  2. NORDIC BERRIES MULTIVITAMIN [Concomitant]
  3. NORDIC NATURALS COMPETE OMEGA 3, 6, 9 [Concomitant]
  4. ARMOUR THYROID [Concomitant]
     Active Substance: THYROID, PORCINE\THYROID, UNSPECIFIED
  5. PLANETARY HERBALS NOPAL CACTUS [Concomitant]
  6. BLUEBONNET CALCIUM-MAGNESIUM [Concomitant]
  7. SUPER DAILY D3 [Concomitant]
  8. FOLIVAN PLUS [Concomitant]
  9. SUCRALFATE. [Concomitant]
     Active Substance: SUCRALFATE
  10. OMEPRAZOLE. [Concomitant]
     Active Substance: OMEPRAZOLE
  11. ZORVOLEX [Suspect]
     Active Substance: DICLOFENAC
     Indication: OSTEOARTHRITIS
     Route: 048
     Dates: start: 20150224, end: 20150305
  12. FOLIC ACID. [Concomitant]
     Active Substance: FOLIC ACID

REACTIONS (3)
  - Abdominal discomfort [None]
  - Anaemia [None]
  - Ulcer haemorrhage [None]

NARRATIVE: CASE EVENT DATE: 20150305
